FAERS Safety Report 9564835 (Version 1)
Quarter: 2013Q3

REPORT INFORMATION
  Report Type: Spontaneous
  Country: US (occurrence: US)
  Receive Date: 20130930
  Receipt Date: 20130930
  Transmission Date: 20140515
  Serious: Yes (Hospitalization)
  Sender: FDA-Public Use
  Company Number: PHEH2013US020262

PATIENT
  Sex: Female

DRUGS (3)
  1. EXELON PATCH [Suspect]
     Dosage: UNK UKN, UNK
     Route: 062
  2. EXELON PATCH [Suspect]
     Dosage: 13.3 MG, UNK
     Route: 062
  3. EXELON PATCH [Suspect]
     Dosage: 9.5 MG, UNK
     Route: 062

REACTIONS (2)
  - Ulcer haemorrhage [Recovered/Resolved]
  - Syncope [Recovered/Resolved]
